FAERS Safety Report 9175871 (Version 1)
Quarter: 2013Q1

REPORT INFORMATION
  Report Type: Spontaneous
  Country: US (occurrence: US)
  Receive Date: 20130320
  Receipt Date: 20130320
  Transmission Date: 20140127
  Serious: Yes (Death, Hospitalization)
  Sender: FDA-Public Use
  Company Number: US-BAXTER-2013BAX008755

PATIENT
  Age: 74 Year
  Sex: Female

DRUGS (1)
  1. DIANEAL LOW CALCIUM [Suspect]
     Indication: PERITONEAL DIALYSIS
     Route: 033

REACTIONS (7)
  - Fluid overload [Fatal]
  - Complications of transplant surgery [Unknown]
  - Intestinal obstruction [Recovering/Resolving]
  - Malnutrition [Recovering/Resolving]
  - Hypoglycaemia [Unknown]
  - Unresponsive to stimuli [Unknown]
  - Dehydration [Recovering/Resolving]
